FAERS Safety Report 15686850 (Version 1)
Quarter: 2018Q4

REPORT INFORMATION
  Report Type: Spontaneous
  Country: US (occurrence: US)
  Receive Date: 20181204
  Receipt Date: 20181204
  Transmission Date: 20190205
  Serious: No
  Sender: FDA-Public Use
  Company Number: US-PORTOLA PHARMACEUTICALS, INC.-2018US000083

PATIENT

DRUGS (2)
  1. ANDEXXA [Suspect]
     Active Substance: ANDEXANET ALFA
     Indication: GASTROINTESTINAL HAEMORRHAGE
  2. ANDEXXA [Suspect]
     Active Substance: ANDEXANET ALFA
     Indication: PROCOAGULANT THERAPY

REACTIONS (1)
  - Off label use [Unknown]
